FAERS Safety Report 7113330-X (Version None)
Quarter: 2010Q4

REPORT INFORMATION
  Report Type: 
  Country: None (occurrence: None)
  Receive Date: 20101119
  Receipt Date: 20101104
  Transmission Date: 20110411
  Serious: Yes (Other)
  Sender: FDA-Public Use
  Company Number: ES-GENENTECH-309510

PATIENT
  Age: 70 Year
  Sex: Male

DRUGS (10)
  1. LUCENTIS [Suspect]
     Indication: MACULAR DEGENERATION
     Dosage: UNK
     Route: 031
     Dates: start: 20100317
  2. LUCENTIS [Suspect]
     Dosage: UNK
     Route: 031
     Dates: start: 20100420
  3. LUCENTIS [Suspect]
     Dosage: UNK
     Route: 031
     Dates: start: 20100525
  4. LUCENTIS [Suspect]
     Dosage: UNK
     Route: 031
     Dates: start: 20100705
  5. LUCENTIS [Suspect]
     Dosage: UNK
     Route: 031
     Dates: start: 20100720
  6. LUCENTIS [Suspect]
     Dosage: UNK
     Route: 031
     Dates: start: 20100809
  7. TENORMIN [Concomitant]
     Indication: PRODUCT USED FOR UNKNOWN INDICATION
  8. ATACAND HCT [Concomitant]
     Indication: PRODUCT USED FOR UNKNOWN INDICATION
  9. UROLOSIN [Concomitant]
     Indication: PRODUCT USED FOR UNKNOWN INDICATION
  10. PANTOPRAZOLE [Concomitant]
     Indication: PRODUCT USED FOR UNKNOWN INDICATION

REACTIONS (1)
  - ISCHAEMIC CARDIOMYOPATHY [None]
